FAERS Safety Report 4777468-4 (Version None)
Quarter: 2005Q3

REPORT INFORMATION
  Report Type: 
  Country: None (occurrence: None)
  Receive Date: 20050915
  Receipt Date: 20050906
  Transmission Date: 20060218
  Serious: Yes (Other)
  Sender: FDA-Public Use
  Company Number: 200513552BCC

PATIENT
  Age: 79 Year
  Sex: Female
  Weight: 56.246 kg

DRUGS (6)
  1. ALEVE [Suspect]
     Indication: ARTHRITIS
     Dosage: 220 MG, QD, ORAL
     Route: 048
     Dates: start: 20050822, end: 20050823
  2. ALPRAZOLAM [Concomitant]
  3. DIPYRIDAMOLE [Concomitant]
  4. LEVOXIL [Concomitant]
  5. ENALAPRIL [Concomitant]
  6. WASCO ASPIRIN [Concomitant]

REACTIONS (3)
  - CEREBROVASCULAR ACCIDENT [None]
  - NERVOUSNESS [None]
  - VISUAL ACUITY REDUCED [None]
